FAERS Safety Report 12300443 (Version 1)
Quarter: 2016Q2

REPORT INFORMATION
  Report Type: Spontaneous
  Country: US (occurrence: US)
  Receive Date: 20160425
  Receipt Date: 20160425
  Transmission Date: 20160815
  Serious: No
  Sender: FDA-Public Use
  Company Number: US-BAUSCH-BL-2015-010526

PATIENT
  Age: 76 Year
  Sex: Female
  Weight: 83.99 kg

DRUGS (1)
  1. LEVOBUNOLOL HYDROCHLORIDE OPHTHALMIC SOLUTION USP 0.5% [Suspect]
     Active Substance: LEVOBUNOLOL HYDROCHLORIDE
     Indication: INTRAOCULAR PRESSURE TEST
     Dosage: ONE DROP INTO BOTH EYES IN THE MORNING.
     Route: 031
     Dates: start: 201409

REACTIONS (7)
  - Eye swelling [Not Recovered/Not Resolved]
  - Lacrimation increased [Not Recovered/Not Resolved]
  - Scab [Not Recovered/Not Resolved]
  - Eye pruritus [Recovering/Resolving]
  - Skin wrinkling [Not Recovered/Not Resolved]
  - Ocular hyperaemia [Not Recovered/Not Resolved]
  - Discomfort [Not Recovered/Not Resolved]
